FAERS Safety Report 9540726 (Version 2)
Quarter: 2013Q3

REPORT INFORMATION
  Report Type: Spontaneous
  Country: NL (occurrence: NL)
  Receive Date: 20130920
  Receipt Date: 20130920
  Transmission Date: 20140515
  Serious: Yes (Death)
  Sender: FDA-Public Use
  Company Number: NL-AMGEN-NLDSP2013065549

PATIENT
  Age: 68 Year
  Sex: Male

DRUGS (2)
  1. XGEVA [Suspect]
     Indication: BONE DISORDER
     Dosage: 120 UNK, Q4WK
     Route: 058
     Dates: start: 20120907
  2. CHEMOTHERAPEUTICS [Concomitant]

REACTIONS (2)
  - Death [Fatal]
  - Pain [Unknown]
